FAERS Safety Report 9993933 (Version 1)
Quarter: 2014Q1

REPORT INFORMATION
  Report Type: Spontaneous
  Country: US (occurrence: US)
  Receive Date: 20140310
  Receipt Date: 20140310
  Transmission Date: 20141002
  Serious: No
  Sender: FDA-Public Use
  Company Number: US-AMGEN-USASP2013053524

PATIENT
  Age: 55 Year
  Sex: Female

DRUGS (2)
  1. SENSIPAR [Suspect]
     Indication: HYPERPARATHYROIDISM SECONDARY
     Dosage: 30 MG, QD
     Route: 065
  2. ZEMPLAR [Concomitant]

REACTIONS (3)
  - Hypotension [Not Recovered/Not Resolved]
  - Blood phosphorus increased [Unknown]
  - Muscle spasms [Unknown]
